FAERS Safety Report 4622574-8 (Version None)
Quarter: 2005Q1

REPORT INFORMATION
  Report Type: 
  Country: None (occurrence: None)
  Receive Date: 20050317
  Receipt Date: 20040917
  Transmission Date: 20050727
  Serious: Yes (Other)
  Sender: FDA-Public Use
  Company Number: PHEH2004US10101

PATIENT
  Age: 74 Year
  Sex: Female

DRUGS (2)
  1. TRILEPTAL [Suspect]
     Dosage: 300 MG, BID, ORAL
     Route: 048
  2. BACLOFEN [Concomitant]

REACTIONS (1)
  - DYSTONIA [None]
